FAERS Safety Report 9068754 (Version 3)
Quarter: 2013Q1

REPORT INFORMATION
  Report Type: Spontaneous
  Country: JP (occurrence: JP)
  Receive Date: 20130128
  Receipt Date: 20130213
  Transmission Date: 20140127
  Serious: Yes (Life-Threatening, Hospitalization)
  Sender: FDA-Public Use
  Company Number: JP-BAYER-2013-006875

PATIENT
  Age: 82 Year
  Sex: Female
  Weight: 40.36 kg

DRUGS (8)
  1. BAYASPIRIN [Suspect]
     Indication: MYELOPROLIFERATIVE DISORDER
     Dosage: 100 MG, QD
     Route: 048
     Dates: start: 20120515, end: 20120524
  2. BAYASPIRIN [Suspect]
     Indication: THROMBOSIS PROPHYLAXIS
  3. NIFEDIPINE [Concomitant]
     Indication: HYPERTENSION
     Dosage: 5 MG, QD
     Route: 048
     Dates: start: 20120515
  4. SELTEPNON [Concomitant]
     Indication: ULCER
     Dosage: 150 MG, QD
     Route: 048
     Dates: start: 20120515
  5. RYTHMODAN [Concomitant]
     Indication: ARRHYTHMIA
     Dosage: 50 MG, QD
     Route: 048
  6. BROTIZOLAM [Concomitant]
     Indication: INSOMNIA
     Dosage: .25 MG, QD
     Route: 048
  7. MAGMITT [Concomitant]
     Indication: CONSTIPATION
     Dosage: 500 MG, QD
     Route: 048
  8. ALOSENN [Concomitant]
     Indication: CONSTIPATION
     Dosage: .5 G, QD
     Route: 048

REACTIONS (1)
  - Haemothorax [Recovered/Resolved]
